FAERS Safety Report 10404405 (Version 1)
Quarter: 2014Q1

REPORT INFORMATION
  Report Type: Spontaneous
  Country: US (occurrence: None)
  Receive Date: 20140214
  Receipt Date: 20140214
  Transmission Date: 20141002
  Serious: No
  Sender: FDA-Public Use
  Company Number: A-NJ2013-93131

PATIENT
  Age: 34 Year
  Sex: Female

DRUGS (3)
  1. OPSUMIT (MACITENTAN) [Suspect]
     Indication: PULMONARY ARTERIAL HYPERTENSION
     Route: 048
     Dates: start: 20131224
  2. COUMADIN (WARFARIN SODIUM) [Concomitant]
  3. FLOLAN (EPOPROSTENOL SODIUM) [Concomitant]

REACTIONS (4)
  - Contusion [None]
  - Condition aggravated [None]
  - Epistaxis [None]
  - Cough [None]
